FAERS Safety Report 7867299-0 (Version None)
Quarter: 2011Q4

REPORT INFORMATION
  Report Type: 
  Country: None (occurrence: None)
  Receive Date: 20111028
  Receipt Date: 20110912
  Transmission Date: 20120403
  Serious: Yes (Death, Hospitalization, Other)
  Sender: FDA-Public Use
  Company Number: DE-ABBOTT-11P-062-0836917-00

PATIENT
  Sex: Male

DRUGS (4)
  1. HUMIRA [Suspect]
     Indication: CROHN'S DISEASE
     Route: 058
     Dates: start: 20110601, end: 20110704
  2. CORTISONE ACETATE [Concomitant]
     Indication: CROHN'S DISEASE
  3. HUMIRA [Suspect]
     Indication: SPONDYLITIS
     Route: 058
     Dates: start: 20110301, end: 20110601
  4. CORTISONE ACETATE [Concomitant]
     Indication: SPONDYLITIS

REACTIONS (16)
  - BLOOD PRESSURE DECREASED [None]
  - RENAL FAILURE ACUTE [None]
  - GENERAL PHYSICAL HEALTH DETERIORATION [None]
  - DYSPNOEA [None]
  - URINARY TRACT INFECTION [None]
  - ARRHYTHMIA [None]
  - DISSEMINATED INTRAVASCULAR COAGULATION [None]
  - PNEUMONIA [None]
  - METABOLIC ACIDOSIS [None]
  - CYANOSIS [None]
  - ACUTE RESPIRATORY FAILURE [None]
  - SEPTIC SHOCK [None]
  - SYSTEMIC INFLAMMATORY RESPONSE SYNDROME [None]
  - PYREXIA [None]
  - ACIDOSIS [None]
  - CARDIAC ARREST [None]
